FAERS Safety Report 6089220-0 (Version None)
Quarter: 2009Q1

REPORT INFORMATION
  Report Type: 
  Country: None (occurrence: None)
  Receive Date: 20090219
  Receipt Date: 20090205
  Transmission Date: 20090719
  Serious: Yes (Hospitalization, Other)
  Sender: FDA-Public Use
  Company Number: WAES 0902USA01259

PATIENT
  Age: 76 Year
  Sex: Male

DRUGS (1)
  1. CAP VORINOSTAT [Suspect]
     Dosage: PO
     Route: 048

REACTIONS (3)
  - BLOOD CREATININE INCREASED [None]
  - FIBRIN D DIMER INCREASED [None]
  - SEPSIS [None]
